FAERS Safety Report 24955218 (Version 3)
Quarter: 2025Q3

REPORT INFORMATION
  Report Type: Spontaneous
  Country: US (occurrence: US)
  Receive Date: 20250211
  Receipt Date: 20250816
  Transmission Date: 20251021
  Serious: No
  Sender: ALEXION PHARMACEUTICALS
  Company Number: US-AstraZeneca-CH-00800296A

PATIENT
  Age: 48 Year
  Sex: Female
  Weight: 67.12 kg

DRUGS (1)
  1. STRENSIQ [Suspect]
     Active Substance: ASFOTASE ALFA
     Indication: Hypophosphatasia
     Dosage: 2 MILLIGRAM, TIW
     Dates: start: 2024

REACTIONS (5)
  - Pain in extremity [Unknown]
  - Fatigue [Unknown]
  - Tendon pain [Unknown]
  - Myalgia [Unknown]
  - Raynaud^s phenomenon [Unknown]
